FAERS Safety Report 24696239 (Version 1)
Quarter: 2024Q4

REPORT INFORMATION
  Report Type: Spontaneous
  Country: CN (occurrence: CN)
  Receive Date: 20241204
  Receipt Date: 20241204
  Transmission Date: 20250115
  Serious: Yes (Hospitalization)
  Sender: JIANGSU HENGRUI MEDICINE CO., LTD.
  Company Number: CN-Jiangsu Hengrui Medicine Co., Ltd.-2166448

PATIENT
  Age: 58 Year
  Sex: Male
  Weight: 79 kg

DRUGS (2)
  1. DOCETAXEL [Suspect]
     Active Substance: DOCETAXEL
     Indication: Prostate cancer
     Dates: start: 20241119, end: 20241119
  2. DEXTROSE [Concomitant]
     Active Substance: DEXTROSE MONOHYDRATE
     Dates: start: 20241119, end: 20241119

REACTIONS (3)
  - Nausea [Recovering/Resolving]
  - Gastrooesophageal reflux disease [Recovering/Resolving]
  - Vomiting [Recovering/Resolving]

NARRATIVE: CASE EVENT DATE: 20241119
